FAERS Safety Report 19270592 (Version 1)
Quarter: 2021Q2

REPORT INFORMATION
  Report Type: Other
  Country: PT (occurrence: PT)
  Receive Date: 20210518
  Receipt Date: 20210518
  Transmission Date: 20210717
  Serious: Yes (Other)
  Sender: FDA-Public Use
  Company Number: PT-ROCHE-2828288

PATIENT

DRUGS (1)
  1. RITUXIMAB. [Suspect]
     Active Substance: RITUXIMAB
     Indication: MULTIPLE SCLEROSIS
     Dosage: 1 G
     Route: 041

REACTIONS (5)
  - Encephalopathy [Unknown]
  - Drug effective for unapproved indication [Unknown]
  - Off label use [Unknown]
  - Multiple sclerosis [Recovering/Resolving]
  - Hemiparesis [Unknown]
